FAERS Safety Report 14610439 (Version 1)
Quarter: 2018Q1

REPORT INFORMATION
  Report Type: Spontaneous
  Country: ES (occurrence: ES)
  Receive Date: 20180307
  Receipt Date: 20180307
  Transmission Date: 20180509
  Serious: Yes (Death, Hospitalization, Other)
  Sender: FDA-Public Use
  Company Number: ES-AMGEN-ESPSP2018029408

PATIENT
  Age: 64 Year
  Sex: Male

DRUGS (3)
  1. PACLITAXEL. [Suspect]
     Active Substance: PACLITAXEL
     Indication: ADENOCARCINOMA GASTRIC
     Dosage: 137 MG, Q2WK (80 MG/M2) ON DAYS 1 AND 8
     Route: 065
     Dates: start: 2015
  2. RAMUCIRUMAB [Suspect]
     Active Substance: RAMUCIRUMAB
     Indication: ADENOCARCINOMA GASTRIC
     Dosage: 496 MG, Q2WK (8 MG/KG) ON DAY 1
     Route: 042
     Dates: start: 201502
  3. FILGRASTIM [Suspect]
     Active Substance: FILGRASTIM
     Indication: ADENOCARCINOMA GASTRIC
     Dosage: 300 MUG, UNK (TWO CONSECUTIVE WEEKLY DOSES FOR THREE WEEKS)
     Route: 058
     Dates: start: 201503

REACTIONS (10)
  - Splenic rupture [Unknown]
  - Death [Fatal]
  - Rectal haemorrhage [Unknown]
  - Metastases to peritoneum [Unknown]
  - Intestinal obstruction [Unknown]
  - Respiratory tract infection [Unknown]
  - Intestinal fistula [Unknown]
  - Abdominal pain [Unknown]
  - Pyrexia [Unknown]
  - Pulmonary embolism [Unknown]

NARRATIVE: CASE EVENT DATE: 2015
